FAERS Safety Report 14363873 (Version 3)
Quarter: 2018Q2

REPORT INFORMATION
  Report Type: Spontaneous
  Country: US (occurrence: US)
  Receive Date: 20180108
  Receipt Date: 20180402
  Transmission Date: 20180711
  Serious: No
  Sender: FDA-Public Use
  Company Number: US-BAYER-2018-003406

PATIENT
  Age: 62 Year
  Sex: Female

DRUGS (6)
  1. REVATIO [Concomitant]
     Active Substance: SILDENAFIL CITRATE
  2. AMLODIPINE [Concomitant]
     Active Substance: AMLODIPINE BESYLATE
  3. SILDENAFIL. [Concomitant]
     Active Substance: SILDENAFIL
  4. AMBRISENTAN [Concomitant]
     Active Substance: AMBRISENTAN
     Indication: PRODUCT USED FOR UNKNOWN INDICATION
     Dosage: 10 MG, QD
     Route: 048
     Dates: start: 20090916
  5. UPTRAVI [Concomitant]
     Active Substance: SELEXIPAG
  6. CLARITIN [Suspect]
     Active Substance: LORATADINE
     Indication: INFUSION SITE PAIN
     Dosage: UNK

REACTIONS (3)
  - Anosmia [Not Recovered/Not Resolved]
  - Ageusia [Not Recovered/Not Resolved]
  - Product use in unapproved indication [Unknown]
